FAERS Safety Report 23066842 (Version 2)
Quarter: 2023Q4

REPORT INFORMATION
  Report Type: Spontaneous
  Country: US (occurrence: US)
  Receive Date: 20231016
  Receipt Date: 20231101
  Transmission Date: 20240109
  Serious: Yes (Other)
  Sender: FDA-Public Use
  Company Number: US-BRISTOL-MYERS SQUIBB COMPANY-2023-146328

PATIENT
  Age: 65 Year
  Sex: Male

DRUGS (1)
  1. LENALIDOMIDE [Suspect]
     Active Substance: LENALIDOMIDE
     Indication: Plasma cell myeloma
     Dosage: ON DAYS 1-14 OF EACH CYCLE
     Route: 048
     Dates: start: 20230814

REACTIONS (3)
  - Hypertension [Not Recovered/Not Resolved]
  - Off label use [Unknown]
  - Product supply issue [Unknown]

NARRATIVE: CASE EVENT DATE: 20231001
